FAERS Safety Report 8428097-2 (Version None)
Quarter: 2012Q2

REPORT INFORMATION
  Report Type: 
  Country: None (occurrence: None)
  Receive Date: 20120611
  Receipt Date: 20120328
  Transmission Date: 20120825
  Serious: No
  Sender: FDA-Public Use
  Company Number: US-ASTRAZENECA-2012SE20696

PATIENT
  Age: 65 Year
  Sex: Male
  Weight: 90.7 kg

DRUGS (1)
  1. RHINOCORT [Suspect]
     Indication: RHINITIS ALLERGIC
     Dosage: 1 PUFF DAILY
     Route: 045

REACTIONS (3)
  - NASAL DISCHARGE DISCOLOURATION [None]
  - NASAL DRYNESS [None]
  - DRUG PRESCRIBING ERROR [None]
